FAERS Safety Report 15933514 (Version 2)
Quarter: 2019Q1

REPORT INFORMATION
  Report Type: Spontaneous
  Country: JP (occurrence: JP)
  Receive Date: 20190207
  Receipt Date: 20190318
  Transmission Date: 20190417
  Serious: Yes (Hospitalization)
  Sender: FDA-Public Use
  Company Number: JP-ROCHE-2261760

PATIENT
  Age: 59 Year
  Sex: Male

DRUGS (4)
  1. LOXONIN [Suspect]
     Active Substance: LOXOPROFEN SODIUM
     Route: 065
     Dates: start: 20190126
  2. XOFLUZA [Suspect]
     Active Substance: BALOXAVIR MARBOXIL
     Indication: INFLUENZA
     Route: 048
     Dates: start: 20190125, end: 20190125
  3. LOXONIN [Suspect]
     Active Substance: LOXOPROFEN SODIUM
     Indication: PRODUCT USED FOR UNKNOWN INDICATION
     Route: 065
     Dates: start: 20190125
  4. PELEX (ACETAMINOPHEN/ANHYDROUS CAFFEINE/CHLORPHENIRAMINE MALEATE/SALIC [Suspect]
     Active Substance: ACETAMINOPHEN\CAFFEINE\CHLORPHENIRAMINE MALEATE\SALICYLAMIDE
     Indication: PRODUCT USED FOR UNKNOWN INDICATION
     Route: 065

REACTIONS (5)
  - Hepatic function abnormal [Unknown]
  - Anaphylactic reaction [Recovered/Resolved]
  - Blood pressure decreased [Unknown]
  - Drug eruption [Not Recovered/Not Resolved]
  - Face oedema [Not Recovered/Not Resolved]

NARRATIVE: CASE EVENT DATE: 20190126
